FAERS Safety Report 8015834-4 (Version None)
Quarter: 2011Q4

REPORT INFORMATION
  Report Type: 
  Country: None (occurrence: None)
  Receive Date: 20111230
  Receipt Date: 20111219
  Transmission Date: 20120403
  Serious: Yes (Other)
  Sender: FDA-Public Use
  Company Number: GB-SANOFI-AVENTIS-2011SA083314

PATIENT
  Age: 72 Year
  Sex: Male

DRUGS (7)
  1. LEFLUNOMIDE [Suspect]
     Route: 048
  2. ALBUTEROL SULFATE AUTOHALER [Concomitant]
     Route: 055
     Dates: start: 20100301
  3. SALMETEROL [Concomitant]
     Dates: start: 20090113
  4. LEFLUNOMIDE [Suspect]
     Indication: RHEUMATOID ARTHRITIS
     Route: 048
     Dates: start: 20101214, end: 20110401
  5. LOSARTAN POTASSIUM [Concomitant]
     Route: 048
     Dates: start: 20091026
  6. QVAR 40 [Concomitant]
     Dates: start: 20100301
  7. BENDROFLUAZIDE [Concomitant]
     Route: 048
     Dates: start: 20090101

REACTIONS (2)
  - DIARRHOEA [None]
  - COLITIS MICROSCOPIC [None]
